FAERS Safety Report 20505567 (Version 2)
Quarter: 2022Q2

REPORT INFORMATION
  Report Type: Spontaneous
  Country: FR (occurrence: FR)
  Receive Date: 20220223
  Receipt Date: 20220412
  Transmission Date: 20220721
  Serious: Yes (Death, Life-Threatening, Other)
  Sender: FDA-Public Use
  Company Number: None

PATIENT
  Age: 51 Year
  Sex: Male

DRUGS (3)
  1. CHLORPROMAZINE [Suspect]
     Active Substance: CHLORPROMAZINE
     Indication: Prophylaxis of nausea and vomiting
     Dosage: UNK, QD
     Route: 042
     Dates: start: 20220106, end: 20220108
  2. FLUOROURACIL [Suspect]
     Active Substance: FLUOROURACIL
     Indication: Pseudomyxoma peritonei
     Dosage: 1200 MG/M2, QD
     Route: 042
     Dates: start: 20220106, end: 20220108
  3. OXALIPLATIN [Suspect]
     Active Substance: OXALIPLATIN
     Indication: Pseudomyxoma peritonei
     Dosage: 85 MG/M2, QD
     Route: 042
     Dates: start: 20220106, end: 20220108

REACTIONS (3)
  - Tonic convulsion [Fatal]
  - Ventricular arrhythmia [Fatal]
  - Cardiac arrest [Fatal]

NARRATIVE: CASE EVENT DATE: 20220107
